FAERS Safety Report 5233233-5 (Version None)
Quarter: 2007Q1

REPORT INFORMATION
  Report Type: 
  Country: None (occurrence: None)
  Receive Date: 20070207
  Receipt Date: 20070105
  Transmission Date: 20070707
  Serious: Yes (Death)
  Sender: FDA-Public Use
  Company Number: US-AMGEN-US202075

PATIENT
  Sex: Male
  Weight: 79 kg

DRUGS (5)
  1. VECTIBIX [Suspect]
     Indication: COLORECTAL CANCER
     Route: 042
     Dates: start: 20061017, end: 20061115
  2. LOVASTATIN [Concomitant]
  3. DILTIAZEM [Concomitant]
  4. MARINOL [Concomitant]
  5. ARANESP [Concomitant]
     Indication: ANAEMIA OF MALIGNANT DISEASE

REACTIONS (4)
  - ABDOMINAL PAIN [None]
  - JAUNDICE [None]
  - LIVER FUNCTION TEST ABNORMAL [None]
  - MALIGNANT NEOPLASM PROGRESSION [None]
